FAERS Safety Report 5214657-9 (Version None)
Quarter: 2007Q1

REPORT INFORMATION
  Report Type: 
  Country: None (occurrence: None)
  Receive Date: 20070122
  Receipt Date: 20070108
  Transmission Date: 20070707
  Serious: Yes (Disabling, Other)
  Sender: FDA-Public Use
  Company Number: US-ELI_LILLY_AND_COMPANY-US200602000151

PATIENT
  Age: 39 Year
  Sex: Female

DRUGS (2)
  1. ORTHO-NOVUM [Concomitant]
     Indication: CONTRACEPTION
  2. CYMBALTA [Suspect]
     Indication: DEPRESSION
     Dosage: 60 MG, UNK
     Route: 048

REACTIONS (1)
  - ANAL CANCER METASTATIC [None]
